FAERS Safety Report 5502758-7 (Version None)
Quarter: 2007Q4

REPORT INFORMATION
  Report Type: 
  Country: None (occurrence: None)
  Receive Date: 20071031
  Receipt Date: 20071026
  Transmission Date: 20080405
  Serious: Yes (Other)
  Sender: FDA-Public Use
  Company Number: HQWYE888910DEC04

PATIENT
  Sex: Female
  Weight: 57.66 kg

DRUGS (5)
  1. PREMPRO [Suspect]
     Indication: HORMONE REPLACEMENT THERAPY
     Dosage: NOT SPECIFIED
     Route: 048
     Dates: start: 19900101, end: 20010101
  2. PREMPRO [Suspect]
     Indication: MENOPAUSAL SYMPTOMS
  3. PREMARIN [Suspect]
  4. PROVERA [Suspect]
  5. CYCRIN [Suspect]

REACTIONS (1)
  - BREAST CANCER METASTATIC [None]
